FAERS Safety Report 18348898 (Version 1)
Quarter: 2020Q4

REPORT INFORMATION
  Report Type: Spontaneous
  Country: US (occurrence: US)
  Receive Date: 20201006
  Receipt Date: 20201006
  Transmission Date: 20210114
  Serious: Yes (Hospitalization, Other)
  Sender: FDA-Public Use
  Company Number: NVSC2020US268377

PATIENT
  Age: 10 Year
  Sex: Female

DRUGS (3)
  1. TRAMETINIB [Suspect]
     Active Substance: TRAMETINIB
     Dosage: 0.025 MG/KG/DOSE
     Route: 065
  2. RAPAMYCIN [Suspect]
     Active Substance: SIROLIMUS
     Indication: ANAPLASTIC OLIGODENDROGLIOMA
     Dosage: 0.8 MG/M2, BID DAILY
     Route: 065
  3. TRAMETINIB [Suspect]
     Active Substance: TRAMETINIB
     Indication: ANAPLASTIC OLIGODENDROGLIOMA
     Dosage: 0.0125 MG/KG/DOSE, QD
     Route: 065

REACTIONS (10)
  - Seizure [Unknown]
  - Rash [Unknown]
  - Intestinal perforation [Unknown]
  - Anaplastic oligodendroglioma [Not Recovered/Not Resolved]
  - Fatigue [Unknown]
  - Dehydration [Unknown]
  - Diarrhoea [Unknown]
  - Malignant neoplasm progression [Unknown]
  - Product use issue [Unknown]
  - Product use in unapproved indication [Unknown]
